FAERS Safety Report 15711189 (Version 2)
Quarter: 2018Q4

REPORT INFORMATION
  Report Type: Report from Study
  Country: US (occurrence: HU)
  Receive Date: 20181211
  Receipt Date: 20181218
  Transmission Date: 20190205
  Serious: Yes (Other)
  Sender: FDA-Public Use
  Company Number: US-SUNOVION-2018SUN004789

PATIENT

DRUGS (3)
  1. WARFARIN [Concomitant]
     Active Substance: WARFARIN
     Indication: PRODUCT USED FOR UNKNOWN INDICATION
     Dosage: UNK
     Route: 065
  2. QUAMATEL [Concomitant]
     Active Substance: FAMOTIDINE
     Indication: PRODUCT USED FOR UNKNOWN INDICATION
     Dosage: UNK
     Route: 065
  3. INDACATEROL AND GLYCOPYRROLATE [Suspect]
     Active Substance: GLYCOPYRROLATE\INDACATEROL MALEATE
     Indication: CHRONIC OBSTRUCTIVE PULMONARY DISEASE
     Dosage: 1 DF, QD (85 UG INDACATEROL, 43 UG GLYCOPYRRONIUM BROMIDE)
     Route: 065

REACTIONS (20)
  - Diabetes mellitus [Not Recovered/Not Resolved]
  - Renal pain [Not Recovered/Not Resolved]
  - Arthralgia [Not Recovered/Not Resolved]
  - Lung disorder [Not Recovered/Not Resolved]
  - Pleurisy [Unknown]
  - Abdominal pain upper [Not Recovered/Not Resolved]
  - Cataract [Not Recovered/Not Resolved]
  - Mobility decreased [Unknown]
  - Depression [Not Recovered/Not Resolved]
  - Pain in extremity [Not Recovered/Not Resolved]
  - Retinal dystrophy [Not Recovered/Not Resolved]
  - Thrombosis [Not Recovered/Not Resolved]
  - Hip fracture [Unknown]
  - Dyspnoea [Unknown]
  - Nasopharyngitis [Unknown]
  - Bladder pain [Not Recovered/Not Resolved]
  - Stress [Unknown]
  - Blood pressure increased [Unknown]
  - Headache [Not Recovered/Not Resolved]
  - Malaise [Unknown]
